FAERS Safety Report 14205900 (Version 1)
Quarter: 2017Q4

REPORT INFORMATION
  Report Type: Report from Study
  Country: CA (occurrence: CA)
  Receive Date: 20171120
  Receipt Date: 20171120
  Transmission Date: 20180321
  Serious: Yes (Hospitalization)
  Sender: FDA-Public Use
  Company Number: CA-JNJFOC-20171119512

PATIENT
  Age: 32 Year
  Sex: Female

DRUGS (2)
  1. SIMPONI [Suspect]
     Active Substance: GOLIMUMAB
     Indication: ANKYLOSING SPONDYLITIS
     Dosage: STRENGTH = 50 MG
     Route: 058
     Dates: start: 20170114
  2. SIMPONI [Suspect]
     Active Substance: GOLIMUMAB
     Indication: ANKYLOSING SPONDYLITIS
     Route: 058
     Dates: start: 20171106

REACTIONS (5)
  - Swelling face [Recovered/Resolved]
  - Laryngeal oedema [Recovered/Resolved]
  - Product use issue [Unknown]
  - Off label use [Unknown]
  - Epiglottitis [Recovered/Resolved]

NARRATIVE: CASE EVENT DATE: 20170114
